FAERS Safety Report 12897591 (Version 1)
Quarter: 2016Q4

REPORT INFORMATION
  Report Type: Spontaneous
  Country: MX (occurrence: MX)
  Receive Date: 20161031
  Receipt Date: 20161031
  Transmission Date: 20170207
  Serious: Yes (Other)
  Sender: FDA-Public Use
  Company Number: MX-PFIZER INC-2016503254

PATIENT
  Age: 59 Year
  Sex: Female

DRUGS (3)
  1. SEDALMERCK /00312001/ [Concomitant]
     Indication: PAIN
     Dosage: UNK
     Dates: start: 2015
  2. EFEXOR [Suspect]
     Active Substance: VENLAFAXINE HYDROCHLORIDE
     Indication: DEPRESSION
     Dosage: 6 DF, WEEKLY
     Dates: start: 2012
  3. EFEXOR [Suspect]
     Active Substance: VENLAFAXINE HYDROCHLORIDE
     Dosage: 225 MG, WEEKLY
     Dates: start: 201610

REACTIONS (12)
  - Therapeutic response unexpected [Unknown]
  - Tachycardia [Unknown]
  - Deafness [Unknown]
  - Vertigo [Unknown]
  - Pre-existing condition improved [Unknown]
  - Drug dose omission [Unknown]
  - Feeling abnormal [Unknown]
  - Balance disorder [Unknown]
  - Nausea [Unknown]
  - Headache [Unknown]
  - Weight decreased [Unknown]
  - Feeling abnormal [Unknown]

NARRATIVE: CASE EVENT DATE: 2012
